FAERS Safety Report 7868098 (Version 3)
Quarter: 2014Q1

REPORT INFORMATION
  Report Type: Spontaneous
  Country: US (occurrence: US)
  Receive Date: 20110323
  Receipt Date: 20140130
  Transmission Date: 20141002
  Serious: Yes (Hospitalization)
  Sender: FDA-Public Use
  Company Number: US-BAYER-2011-023806

PATIENT
  Age: 21 Year
  Sex: Female
  Weight: 79.37 kg

DRUGS (1)
  1. YAZ [Suspect]
     Indication: PREMENSTRUAL SYNDROME
     Dosage: UNK
     Route: 048
     Dates: start: 2003, end: 2007

REACTIONS (5)
  - Cholecystectomy [None]
  - Cholecystitis chronic [None]
  - Pain [None]
  - Injury [None]
  - General physical health deterioration [None]
